FAERS Safety Report 18063378 (Version 1)
Quarter: 2020Q3

REPORT INFORMATION
  Report Type: Other
  Country: PL (occurrence: PL)
  Receive Date: 20200724
  Receipt Date: 20200724
  Transmission Date: 20201103
  Serious: Yes (Hospitalization, Other)
  Sender: FDA-Public Use
  Company Number: PL-CELLTRION INC.-2020PL024542

PATIENT

DRUGS (3)
  1. TRITACE [Concomitant]
     Active Substance: RAMIPRIL
     Indication: HYPERTENSION
     Route: 065
  2. RITUXIMAB (UNKNOWN) [Suspect]
     Active Substance: RITUXIMAB
     Indication: DIFFUSE LARGE B-CELL LYMPHOMA
     Route: 065
  3. ACARD [Concomitant]
     Active Substance: ASPIRIN
     Indication: PROPHYLAXIS
     Route: 065

REACTIONS (18)
  - Hypokalaemia [Unknown]
  - Pulmonary congestion [Unknown]
  - Acute coronary syndrome [Unknown]
  - Paraesthesia oral [Unknown]
  - Thrombocytopenia [Unknown]
  - Visual field defect [Unknown]
  - Ejection fraction decreased [Unknown]
  - Hypoaesthesia [Unknown]
  - Asthenia [Unknown]
  - Speech disorder [Unknown]
  - Haemoglobin decreased [Unknown]
  - Cerebral ischaemia [Unknown]
  - Cardiomyopathy [Unknown]
  - Memory impairment [Unknown]
  - Loss of consciousness [Unknown]
  - Headache [Unknown]
  - Blood pressure fluctuation [Unknown]
  - Tachycardia [Unknown]

NARRATIVE: CASE EVENT DATE: 201507
